FAERS Safety Report 8211722-9 (Version None)
Quarter: 2012Q1

REPORT INFORMATION
  Report Type: 
  Country: None (occurrence: None)
  Receive Date: 20120315
  Receipt Date: 20120307
  Transmission Date: 20120608
  Serious: Yes (Other)
  Sender: FDA-Public Use
  Company Number: PT-JNJFOC-20120212465

PATIENT
  Age: 30 Year
  Sex: Female

DRUGS (3)
  1. SIMPONI [Suspect]
     Indication: ANKYLOSING SPONDYLITIS
     Route: 058
     Dates: start: 20110601
  2. ETHINYLESTRADIOL W/GESTODENE [Concomitant]
     Route: 048
  3. SIMPONI [Suspect]
     Route: 058
     Dates: start: 20120203

REACTIONS (1)
  - CEREBRAL THROMBOSIS [None]
